FAERS Safety Report 6541814-1 (Version None)
Quarter: 2010Q1

REPORT INFORMATION
  Report Type: 
  Country: None (occurrence: None)
  Receive Date: 20100119
  Receipt Date: 20100108
  Transmission Date: 20100710
  Serious: Yes (Other)
  Sender: FDA-Public Use
  Company Number: PHHY2009JP55581

PATIENT
  Sex: Female
  Weight: 40 kg

DRUGS (6)
  1. TEGRETOL [Suspect]
     Indication: NEURALGIA
     Dosage: 200 MG DAILY
     Route: 048
     Dates: start: 20091207, end: 20091209
  2. TAKEPRON [Concomitant]
     Indication: REFLUX OESOPHAGITIS
     Dosage: UNK
     Route: 048
     Dates: start: 20091109, end: 20091223
  3. EURODIN [Concomitant]
     Indication: INSOMNIA
     Dosage: UNK
     Route: 048
     Dates: start: 20091201, end: 20091210
  4. PN TWIN [Concomitant]
     Dosage: UNK
     Route: 042
     Dates: start: 20091113, end: 20091230
  5. FIRSTCIN [Concomitant]
     Indication: BRONCHITIS
     Dosage: UNK
     Route: 042
     Dates: start: 20091209, end: 20091218
  6. RINDERON [Concomitant]
     Indication: LYMPHOMA
     Dosage: UNK
     Route: 042
     Dates: start: 20091209, end: 20091224

REACTIONS (3)
  - ALTERED STATE OF CONSCIOUSNESS [None]
  - BLOOD PRESSURE DECREASED [None]
  - HEART RATE INCREASED [None]
